FAERS Safety Report 7634355-1 (Version None)
Quarter: 2011Q3

REPORT INFORMATION
  Report Type: 
  Country: None (occurrence: None)
  Receive Date: 20110725
  Receipt Date: 20110721
  Transmission Date: 20111222
  Serious: Yes (Hospitalization, Other)
  Sender: FDA-Public Use
  Company Number: US-CEPHALON-2010002810

PATIENT
  Sex: Male
  Weight: 114 kg

DRUGS (4)
  1. TREANDA [Suspect]
     Route: 042
     Dates: start: 20100429, end: 20100505
  2. TREANDA [Suspect]
     Indication: LYMPHOMA
     Route: 042
     Dates: start: 20100504, end: 20100505
  3. LEVAQUIN [Suspect]
  4. VANTIN [Suspect]

REACTIONS (7)
  - DERMATITIS ACNEIFORM [None]
  - HAEMATURIA [None]
  - BLADDER CANCER [None]
  - PYREXIA [None]
  - GRANULOMA [None]
  - PNEUMONIA [None]
  - WHITE BLOOD CELL COUNT DECREASED [None]
